FAERS Safety Report 8833441 (Version 2)
Quarter: 2013Q2

REPORT INFORMATION
  Report Type: Spontaneous
  Country: IT (occurrence: IT)
  Receive Date: 20121010
  Receipt Date: 20130617
  Transmission Date: 20140414
  Serious: Yes (Hospitalization)
  Sender: FDA-Public Use
  Company Number: IT-SANOFI-AVENTIS-2012SA073574

PATIENT
  Age: 76 Year
  Sex: Male

DRUGS (16)
  1. LEVOXACIN [Suspect]
     Indication: PRODUCT USED FOR UNKNOWN INDICATION
     Route: 048
     Dates: start: 20120815, end: 20120817
  2. RIFADIN [Suspect]
     Indication: PRODUCT USED FOR UNKNOWN INDICATION
     Route: 048
     Dates: start: 20120815, end: 20120817
  3. CEFDITOREN PIVOXIL [Suspect]
     Indication: PRODUCT USED FOR UNKNOWN INDICATION
     Route: 048
     Dates: start: 20120815, end: 20120817
  4. LANSOPRAZOLE [Concomitant]
  5. LACTULOSE [Concomitant]
  6. MIRTAZAPINE [Concomitant]
  7. DISIPAL [Concomitant]
  8. GASTROGEL [Concomitant]
  9. RIFACOL [Concomitant]
  10. VALIUM [Concomitant]
  11. MICONAZOLE [Concomitant]
  12. GUTRON [Concomitant]
  13. INTRAFER [Concomitant]
     Dates: start: 20120815, end: 20120817
  14. KCL-RETARD [Concomitant]
  15. SOBREROL [Concomitant]
  16. CLOPIXOL [Concomitant]

REACTIONS (3)
  - Melaena [Unknown]
  - Hypotension [Unknown]
  - Diarrhoea [Unknown]
